FAERS Safety Report 5002803-1 (Version None)
Quarter: 2006Q2

REPORT INFORMATION
  Report Type: 
  Country: None (occurrence: None)
  Receive Date: 20060512
  Receipt Date: 20060502
  Transmission Date: 20061013
  Serious: Yes (Hospitalization)
  Sender: FDA-Public Use
  Company Number: FR200512003301

PATIENT
  Age: 85 Year
  Sex: Male

DRUGS (3)
  1. ALIMTA [Suspect]
     Indication: SMALL CELL LUNG CANCER STAGE UNSPECIFIED
     Dosage: 870 MG, OTHER, INTRAVENOUS
     Route: 042
     Dates: start: 20050930, end: 20051024
  2. ARANESP [Concomitant]
  3. ZOFRAN [Concomitant]

REACTIONS (3)
  - DERMATITIS BULLOUS [None]
  - EPIDERMOLYSIS [None]
  - ERYTHEMA [None]
